FAERS Safety Report 24109938 (Version 2)
Quarter: 2025Q2

REPORT INFORMATION
  Report Type: Spontaneous
  Country: US (occurrence: US)
  Receive Date: 20240718
  Receipt Date: 20250620
  Transmission Date: 20250717
  Serious: Yes (Life-Threatening, Hospitalization, Other)
  Sender: PFIZER
  Company Number: US-PFIZER INC-PV202400093269

PATIENT
  Age: 42 Year
  Sex: Male

DRUGS (17)
  1. PHENELZINE SULFATE [Interacting]
     Active Substance: PHENELZINE SULFATE
     Indication: Depression
     Dosage: 45 MG, 2X/DAY
  2. NORTRIPTYLINE [Interacting]
     Active Substance: NORTRIPTYLINE
     Indication: Depression
     Dosage: 100 MG, DAILY (NIGHTLY)
  3. NORTRIPTYLINE [Interacting]
     Active Substance: NORTRIPTYLINE
     Dosage: 50 MG, DAILY (NIGHTLY)
  4. TRANYLCYPROMINE [Interacting]
     Active Substance: TRANYLCYPROMINE
     Indication: Depression
     Dosage: 10 MG, 2X/DAY
  5. TRANYLCYPROMINE [Interacting]
     Active Substance: TRANYLCYPROMINE
     Dosage: 20 MG, 2X/DAY (WAS TITRATED UP TO 20 MG TWICE DAILY OVER 2 WEEKS)
  6. TRANYLCYPROMINE [Interacting]
     Active Substance: TRANYLCYPROMINE
     Dosage: 90 MG, DAILY
  7. AMPHETAMINE SULFATE\DEXTROAMPHETAMINE [Interacting]
     Active Substance: AMPHETAMINE SULFATE\DEXTROAMPHETAMINE
     Indication: Depression
     Dosage: 20 MG, DAILY (EXTENDED RELEASE)
  8. ATORVASTATIN [Concomitant]
     Active Substance: ATORVASTATIN
     Dosage: 80 MG, DAILY
  9. FENOFIBRATE [Concomitant]
     Active Substance: FENOFIBRATE
     Dosage: 160 MG, DAILY
  10. GLIPIZIDE [Concomitant]
     Active Substance: GLIPIZIDE
     Dosage: 10 MG, 2X/DAY
  11. LIRAGLUTIDE [Concomitant]
     Active Substance: LIRAGLUTIDE
     Dosage: 0.6 MG, DAILY
     Route: 058
  12. METFORMIN [Concomitant]
     Active Substance: METFORMIN HYDROCHLORIDE
     Dosage: 500 MG, 2X/DAY
  13. OMEPRAZOLE [Concomitant]
     Active Substance: OMEPRAZOLE
     Dosage: 40 MG, DAILY
  14. PROPRANOLOL [Concomitant]
     Active Substance: PROPRANOLOL HYDROCHLORIDE
     Dosage: 20 MG, 3X/DAY
  15. VALPROATE [Concomitant]
     Active Substance: VALPROIC ACID
     Dosage: 2000 MG, DAILY (NIGHTLY) EXTENDED RELEASE
  16. ZOLPIDEM [Concomitant]
     Active Substance: ZOLPIDEM TARTRATE
     Dosage: 10 MG, DAILY (NIGHTLY)
  17. LITHIUM [Concomitant]
     Active Substance: LITHIUM
     Dosage: 20 MG, 2X/DAY (OVER THE COUNTER)

REACTIONS (3)
  - Contraindicated product administered [Unknown]
  - Hypertensive emergency [Recovered/Resolved]
  - Drug interaction [Recovered/Resolved]
